FAERS Safety Report 13754208 (Version 4)
Quarter: 2017Q4

REPORT INFORMATION
  Report Type: Spontaneous
  Country: US (occurrence: US)
  Receive Date: 20170714
  Receipt Date: 20171205
  Transmission Date: 20180320
  Serious: Yes (Hospitalization, Other)
  Sender: FDA-Public Use
  Company Number: US-PFIZER INC-2017300924

PATIENT
  Age: 55 Year
  Sex: Female
  Weight: 73.3 kg

DRUGS (2)
  1. LETROZOLE. [Suspect]
     Active Substance: LETROZOLE
     Indication: BREAST CANCER METASTATIC
     Dosage: UNK
     Dates: start: 201505, end: 201609
  2. IBRANCE [Suspect]
     Active Substance: PALBOCICLIB
     Indication: BREAST CANCER METASTATIC
     Dosage: 125 MG, CYCLIC (ONE A DAY AT NIGHT FOR 3 WEEKS AND 1 WEEK OFF)
     Route: 048
     Dates: start: 201508, end: 201605

REACTIONS (3)
  - Stomatitis haemorrhagic [Recovered/Resolved]
  - Speech disorder [Unknown]
  - Oropharyngeal pain [Recovered/Resolved]

NARRATIVE: CASE EVENT DATE: 201508
